FAERS Safety Report 15976980 (Version 1)
Quarter: 2019Q1

REPORT INFORMATION
  Report Type: Spontaneous
  Country: US (occurrence: US)
  Receive Date: 20190218
  Receipt Date: 20190218
  Transmission Date: 20190418
  Serious: No
  Sender: FDA-Public Use
  Company Number: US-PFIZER INC-2019066485

PATIENT
  Age: 85 Year
  Sex: Female
  Weight: 53.52 kg

DRUGS (1)
  1. ESTRING [Suspect]
     Active Substance: ESTRADIOL
     Indication: BLADDER DISORDER
     Dosage: UNK, EVERY 3 MONTHS

REACTIONS (4)
  - Constipation [Unknown]
  - Weight decreased [Unknown]
  - Pain [Unknown]
  - Product use in unapproved indication [Unknown]
